FAERS Safety Report 25785698 (Version 8)
Quarter: 2025Q4

REPORT INFORMATION
  Report Type: Report from Study
  Country: US (occurrence: US)
  Receive Date: 20250910
  Receipt Date: 20251128
  Transmission Date: 20260118
  Serious: No
  Sender: ACADIA PHARMACEUTICALS
  Company Number: US-ACADIA PHARMACEUTICALS INC.-ACA-2025-TRF-010007

PATIENT
  Sex: Female
  Weight: 19.501 kg

DRUGS (5)
  1. DAYBUE [Suspect]
     Active Substance: TROFINETIDE
     Indication: Rett syndrome
     Dosage: 30 MILLILITER, BID
     Route: 048
  2. MUPIROCIN [Concomitant]
     Active Substance: MUPIROCIN
     Dosage: TOPICAL
  3. BACLOFEN [Concomitant]
     Active Substance: BACLOFEN
  4. LACOSAMIDE [Concomitant]
     Active Substance: LACOSAMIDE
  5. EPIDIOLEX [Concomitant]
     Active Substance: CANNABIDIOL
     Dosage: 100 UG/ML

REACTIONS (5)
  - Pharyngitis [Unknown]
  - Weight decreased [Not Recovered/Not Resolved]
  - Intentional dose omission [Not Recovered/Not Resolved]
  - Product use complaint [Not Recovered/Not Resolved]
  - Inappropriate schedule of product administration [Unknown]
